FAERS Safety Report 11942888 (Version 1)
Quarter: 2016Q1

REPORT INFORMATION
  Report Type: Spontaneous
  Country: US (occurrence: US)
  Receive Date: 20160125
  Receipt Date: 20160125
  Transmission Date: 20160526
  Serious: No
  Sender: FDA-Public Use
  Company Number: US-UNITED THERAPEUTICS-UNT-2015-009489

PATIENT
  Age: 57 Year
  Sex: Female
  Weight: 49.43 kg

DRUGS (1)
  1. REMODULIN [Suspect]
     Active Substance: TREPROSTINIL
     Indication: PULMONARY HYPERTENSION
     Dosage: 0.012 ?G/KG/MIN, CONTINUING
     Route: 041
     Dates: start: 20150202

REACTIONS (5)
  - Injection site pain [Unknown]
  - Injection site oedema [Unknown]
  - Injection site erythema [Unknown]
  - Pyrexia [Unknown]
  - Injection site pruritus [Unknown]

NARRATIVE: CASE EVENT DATE: 2015
